FAERS Safety Report 23262214 (Version 1)
Quarter: 2023Q4

REPORT INFORMATION
  Report Type: Spontaneous
  Country: US (occurrence: None)
  Receive Date: 20231204
  Receipt Date: 20231204
  Transmission Date: 20240110
  Serious: No
  Sender: FDA-Public Use
  Company Number: None

PATIENT
  Age: 22 Year
  Sex: Male

DRUGS (1)
  1. COSENTYX [Suspect]
     Active Substance: SECUKINUMAB
     Indication: Psoriasis
     Dosage: INJECTE 300MG (1 PEN) SUBCUTANEOUSLY EVERY WEEK FOR 5 WEEKS AS DIRECTED
     Route: 058
     Dates: start: 202311

REACTIONS (1)
  - Nail infection [None]
